FAERS Safety Report 7971619-6 (Version None)
Quarter: 2011Q4

REPORT INFORMATION
  Report Type: 
  Country: None (occurrence: None)
  Receive Date: 20111212
  Receipt Date: 20111201
  Transmission Date: 20120403
  Serious: Yes (Other)
  Sender: FDA-Public Use
  Company Number: CA-JNJFOC-20111202624

PATIENT
  Sex: Male
  Weight: 98.6 kg

DRUGS (7)
  1. LITHIUM [Suspect]
     Indication: MIGRAINE
  2. NEXIUM [Concomitant]
  3. DIDROCAL [Concomitant]
  4. METHOTREXATE [Concomitant]
  5. VERAPAMIL [Suspect]
     Indication: MIGRAINE
     Dates: start: 20110901
  6. PREDNISONE [Concomitant]
  7. REMICADE [Suspect]
     Indication: RHEUMATOID ARTHRITIS
     Route: 042
     Dates: start: 20061110

REACTIONS (3)
  - HEART RATE DECREASED [None]
  - WEIGHT DECREASED [None]
  - MIGRAINE [None]
